FAERS Safety Report 9926095 (Version 1)
Quarter: 2014Q1

REPORT INFORMATION
  Report Type: Spontaneous
  Country: FR (occurrence: FR)
  Receive Date: 20140226
  Receipt Date: 20140226
  Transmission Date: 20141002
  Serious: Yes (Other)
  Sender: FDA-Public Use
  Company Number: PHHY2014FR022250

PATIENT
  Age: 54 Year
  Sex: Male

DRUGS (1)
  1. PARACETAMOL [Suspect]
     Indication: ABDOMINAL PAIN
     Dosage: 8 G, UNK

REACTIONS (2)
  - Drug-induced liver injury [Unknown]
  - Hepatic necrosis [Unknown]
